FAERS Safety Report 7510356-9 (Version None)
Quarter: 2011Q2

REPORT INFORMATION
  Report Type: 
  Country: None (occurrence: None)
  Receive Date: 20110527
  Receipt Date: 20110516
  Transmission Date: 20111010
  Serious: Yes (Hospitalization)
  Sender: FDA-Public Use
  Company Number: IN-WATSON-2011-06821

PATIENT
  Age: 32 Year
  Sex: Male

DRUGS (2)
  1. DISULFIRAM [Suspect]
     Indication: ALCOHOL USE
     Dosage: 500 MG, DAILY
  2. DISULFIRAM [Suspect]
     Dosage: 250 MG, DAILY

REACTIONS (3)
  - CATATONIA [None]
  - PARANOIA [None]
  - ANXIETY [None]
